FAERS Safety Report 4600661-8 (Version None)
Quarter: 2005Q1

REPORT INFORMATION
  Report Type: 
  Country: None (occurrence: None)
  Receive Date: 20050304
  Receipt Date: 20050215
  Transmission Date: 20050727
  Serious: No
  Sender: FDA-Public Use
  Company Number: 10326

PATIENT
  Age: 22 Year
  Sex: Male

DRUGS (3)
  1. BLEOMYCIN [Suspect]
     Indication: TESTIS CANCER
     Dosage: 540 MG TOTAL
  2. CISPLATIN [Concomitant]
  3. ETOPOSIDE [Concomitant]

REACTIONS (11)
  - ABDOMINAL MASS [None]
  - CHEST PAIN [None]
  - DRUG TOXICITY [None]
  - ELECTROCARDIOGRAM ST SEGMENT ABNORMAL [None]
  - MEDIASTINAL MASS [None]
  - MUSCLE CONTRACTIONS INVOLUNTARY [None]
  - NECROSIS [None]
  - PERIPHERAL BLOOD STEM CELL APHERESIS [None]
  - PULMONARY TOXICITY [None]
  - RAYNAUD'S PHENOMENON [None]
  - RESTRICTIVE PULMONARY DISEASE [None]
